FAERS Safety Report 19894288 (Version 1)
Quarter: 2021Q3

REPORT INFORMATION
  Report Type: Spontaneous
  Country: US (occurrence: US)
  Receive Date: 20210928
  Receipt Date: 20210928
  Transmission Date: 20211014
  Serious: No
  Sender: FDA-Public Use
  Company Number: None

PATIENT
  Age: 74 Year
  Sex: Female
  Weight: 63 kg

DRUGS (1)
  1. JARDIANCE [Suspect]
     Active Substance: EMPAGLIFLOZIN
     Indication: TYPE 2 DIABETES MELLITUS
     Dosage: ?          QUANTITY:1 TABLET(S);?
     Route: 048
     Dates: start: 20210604, end: 20210905

REACTIONS (4)
  - Gastrooesophageal reflux disease [None]
  - Flatulence [None]
  - Gastrointestinal disorder [None]
  - Abdominal pain upper [None]

NARRATIVE: CASE EVENT DATE: 20210903
